FAERS Safety Report 25253107 (Version 1)
Quarter: 2025Q2

REPORT INFORMATION
  Report Type: Report from Study
  Country: US (occurrence: US)
  Receive Date: 20250430
  Receipt Date: 20250430
  Transmission Date: 20250717
  Serious: Yes (Other)
  Sender: ABBVIE
  Company Number: US-ABBVIE-6007352

PATIENT
  Age: 77 Year
  Sex: Male
  Weight: 112.03 kg

DRUGS (5)
  1. LUPRON DEPOT [Suspect]
     Active Substance: LEUPROLIDE ACETATE
     Indication: Prostate cancer
     Dosage: UNKNOWN
     Route: 030
     Dates: start: 202407
  2. FISH OIL [Concomitant]
     Active Substance: FISH OIL
     Indication: Cardiac disorder
  3. VITAMIN B3 [Concomitant]
     Active Substance: NIACIN
     Indication: Product used for unknown indication
  4. IRON [Concomitant]
     Active Substance: IRON
     Indication: Product used for unknown indication
  5. KRILL OIL [Concomitant]
     Active Substance: DIETARY SUPPLEMENT\KRILL OIL
     Indication: Cardiac disorder

REACTIONS (6)
  - Cerebrovascular accident [Not Recovered/Not Resolved]
  - Hot flush [Not Recovered/Not Resolved]
  - Cardiac disorder [Unknown]
  - Hypertension [Unknown]
  - Diabetes mellitus [Unknown]
  - Visual impairment [Not Recovered/Not Resolved]

NARRATIVE: CASE EVENT DATE: 20240101
